FAERS Safety Report 9521923 (Version 3)
Quarter: 2013Q4

REPORT INFORMATION
  Report Type: Report from Study
  Country: AR (occurrence: AR)
  Receive Date: 20130913
  Receipt Date: 20131113
  Transmission Date: 20140711
  Serious: Yes (Other)
  Sender: FDA-Public Use
  Company Number: AR-ROCHE-1272909

PATIENT
  Age: 75 Year
  Sex: Female

DRUGS (3)
  1. LUCENTIS [Suspect]
     Indication: EYE DISORDER
     Route: 050
     Dates: start: 201305
  2. LUCENTIS [Suspect]
     Route: 050
     Dates: start: 201307
  3. LUCENTIS [Suspect]
     Route: 050
     Dates: start: 20130829

REACTIONS (5)
  - Eye discharge [Not Recovered/Not Resolved]
  - Eye pain [Recovered/Resolved]
  - Visual acuity reduced [Unknown]
  - Drug ineffective [Unknown]
  - Lacrimation increased [Unknown]
